FAERS Safety Report 22066636 (Version 1)
Quarter: 2023Q1

REPORT INFORMATION
  Report Type: Spontaneous
  Country: GB (occurrence: GB)
  Receive Date: 20230306
  Receipt Date: 20230306
  Transmission Date: 20230417
  Serious: Yes (Other)
  Sender: FDA-Public Use
  Company Number: GB-MHRA-MED-202302271052334580-BNCHR

PATIENT
  Age: 22 Year
  Sex: Female

DRUGS (1)
  1. DEPO-PROVERA [Suspect]
     Active Substance: MEDROXYPROGESTERONE ACETATE
     Indication: Contraception
     Dosage: 150 MG, EVERY 12 WEEKS

REACTIONS (4)
  - Dysuria [Recovering/Resolving]
  - Haematuria [Unknown]
  - Abdominal pain lower [Unknown]
  - Back pain [Unknown]

NARRATIVE: CASE EVENT DATE: 20230103
